FAERS Safety Report 8537086-9 (Version None)
Quarter: 2012Q3

REPORT INFORMATION
  Report Type: 
  Country: None (occurrence: None)
  Receive Date: 20120725
  Receipt Date: 20120719
  Transmission Date: 20120928
  Serious: Yes (Other)
  Sender: FDA-Public Use
  Company Number: US-CELGENEUS-163-21880-12062558

PATIENT
  Sex: Male
  Weight: 95.34 kg

DRUGS (13)
  1. ASPIRIN [Concomitant]
     Dosage: 325 MILLIGRAM
     Route: 048
  2. METAMUCIL-2 [Concomitant]
     Dosage: 1 UNIT
     Route: 048
  3. FLEXERIL [Concomitant]
     Dosage: 10 MILLIGRAM
     Route: 048
  4. ZANTAC [Concomitant]
     Dosage: 300 MILLIGRAM
     Route: 048
  5. K-TAB [Concomitant]
     Dosage: 40 MILLIEQUIVALENTS
     Route: 048
  6. OXYGEN [Concomitant]
     Dosage: 2 LITERS
     Route: 055
  7. REVLIMID [Suspect]
     Indication: MULTIPLE MYELOMA
     Dosage: 25 MILLIGRAM
     Route: 048
     Dates: start: 20120501, end: 20120621
  8. NYSTATIN [Concomitant]
     Dosage: 20 MILLILITER
     Route: 048
  9. DEXAMETHASONE [Concomitant]
     Indication: MULTIPLE MYELOMA
     Dosage: 5.7143 MILLIGRAM
     Route: 065
     Dates: start: 20120501
  10. ACYCLOVIR [Concomitant]
     Dosage: 800 MILLIGRAM
     Route: 048
  11. VERAPAMIL [Concomitant]
     Dosage: 240 MILLIGRAM
     Route: 048
  12. COMBIVENT [Concomitant]
     Dosage: 2 PUFFS 18-103MCG
     Route: 055
  13. TYLENOL [Concomitant]
     Dosage: 500 MILLIGRAM
     Route: 048

REACTIONS (12)
  - DIZZINESS [None]
  - PAIN [None]
  - DYSPNOEA [None]
  - DECREASED APPETITE [None]
  - APHONIA [None]
  - INFLUENZA LIKE ILLNESS [None]
  - HAEMOPTYSIS [None]
  - FALL [None]
  - NAUSEA [None]
  - CONSTIPATION [None]
  - OEDEMA PERIPHERAL [None]
  - ASTHENIA [None]
